FAERS Safety Report 6721867-8 (Version None)
Quarter: 2010Q2

REPORT INFORMATION
  Report Type: 
  Country: None (occurrence: None)
  Receive Date: 20100512
  Receipt Date: 20100430
  Transmission Date: 20101027
  Serious: Yes (Other)
  Sender: FDA-Public Use
  Company Number: PHHY2010AT28041

PATIENT
  Sex: Male

DRUGS (1)
  1. RASILEZ HCT [Suspect]

REACTIONS (2)
  - CARDIAC FAILURE [None]
  - FLUSHING [None]
